FAERS Safety Report 4331190-7 (Version None)
Quarter: 2004Q1

REPORT INFORMATION
  Report Type: 
  Country: None (occurrence: None)
  Receive Date: 20040331
  Receipt Date: 20040317
  Transmission Date: 20041129
  Serious: Yes (Other)
  Sender: FDA-Public Use
  Company Number: GBS040314623

PATIENT
  Age: 83 Year
  Sex: Female

DRUGS (5)
  1. PROZAC [Suspect]
     Dosage: 20 MG DAY
  2. ASPIRIN [Concomitant]
  3. FRUSEMIDE [Concomitant]
  4. BACLOFEN [Concomitant]
  5. LAMOTRIGINE [Concomitant]

REACTIONS (2)
  - CARDIOVASCULAR DISORDER [None]
  - CONVULSION [None]
